FAERS Safety Report 13580161 (Version 1)
Quarter: 2017Q2

REPORT INFORMATION
  Report Type: Spontaneous
  Country: US (occurrence: US)
  Receive Date: 20170525
  Receipt Date: 20170525
  Transmission Date: 20170830
  Serious: Yes (Other)
  Sender: FDA-Public Use
  Company Number: US-PURDUE-USA-2017-0137537

PATIENT
  Age: 27 Year
  Sex: Male

DRUGS (1)
  1. HYDROCODONE BITARTRATE (SIMILAR TO NDA 206627) [Suspect]
     Active Substance: HYDROCODONE BITARTRATE
     Indication: DRUG USE DISORDER
     Dosage: UNK
     Route: 048

REACTIONS (3)
  - Drug use disorder [Unknown]
  - Somnolence [Unknown]
  - Ocular hyperaemia [Unknown]
